FAERS Safety Report 12979281 (Version 1)
Quarter: 2016Q4

REPORT INFORMATION
  Report Type: Spontaneous
  Country: FI (occurrence: FI)
  Receive Date: 20161128
  Receipt Date: 20161128
  Transmission Date: 20170207
  Serious: Yes (Hospitalization)
  Sender: FDA-Public Use
  Company Number: FI-ASTRAZENECA-2016SF22844

PATIENT
  Age: 68 Year
  Sex: Male

DRUGS (2)
  1. BICALUTAMIDE. [Suspect]
     Active Substance: BICALUTAMIDE
     Indication: PROSTATE CANCER
     Dosage: RESTARTED DOSE AFTER INCREASED PSA
     Route: 048
  2. BICALUTAMIDE. [Suspect]
     Active Substance: BICALUTAMIDE
     Indication: PROSTATE CANCER
     Route: 048
     Dates: start: 200608

REACTIONS (2)
  - Phyllodes tumour [Recovered/Resolved]
  - Gynaecomastia [Recovered/Resolved]

NARRATIVE: CASE EVENT DATE: 2014
